FAERS Safety Report 6321697-5 (Version None)
Quarter: 2009Q3

REPORT INFORMATION
  Report Type: 
  Country: None (occurrence: None)
  Receive Date: 20090821
  Receipt Date: 20090821
  Transmission Date: 20100115
  Serious: No
  Sender: FDA-Public Use
  Company Number: None

PATIENT

DRUGS (2)
  1. PREDNISONE [Suspect]
     Indication: EAR DISORDER
     Dosage: 12 DAY PACK LOOK LIKE DOCTOR PRESCRIBED TOOK FOR 12 DAYS AS PRESCRIBED
     Dates: start: 20090724
  2. PREDNISONE [Suspect]
     Indication: PHARYNGEAL DISORDER
     Dosage: 12 DAY PACK LOOK LIKE DOCTOR PRESCRIBED TOOK FOR 12 DAYS AS PRESCRIBED
     Dates: start: 20090724

REACTIONS (10)
  - ABDOMINAL DISCOMFORT [None]
  - ASTHENIA [None]
  - BONE DISORDER [None]
  - CHILLS [None]
  - DRUG INEFFECTIVE [None]
  - HEADACHE [None]
  - HYPOPHAGIA [None]
  - INSOMNIA [None]
  - OROPHARYNGEAL PAIN [None]
  - RASH PUSTULAR [None]
